FAERS Safety Report 19068816 (Version 3)
Quarter: 2021Q4

REPORT INFORMATION
  Report Type: Spontaneous
  Country: US (occurrence: US)
  Receive Date: 20210329
  Receipt Date: 20211027
  Transmission Date: 20220303
  Serious: Yes (Other)
  Sender: FDA-Public Use
  Company Number: US-KYOWAKIRIN-2021BKK004811

PATIENT

DRUGS (13)
  1. NOURIANZ [Suspect]
     Active Substance: ISTRADEFYLLINE
     Indication: Parkinson^s disease
     Dosage: 20 MG, ONCE DAILY
     Route: 048
     Dates: start: 20200925
  2. ALPRAZOLAM [Concomitant]
     Active Substance: ALPRAZOLAM
     Indication: Product used for unknown indication
     Dosage: 0.5 MG
     Route: 065
  3. CARBIDOPA\LEVODOPA [Concomitant]
     Active Substance: CARBIDOPA\LEVODOPA
     Indication: Product used for unknown indication
     Dosage: 25-100 MG
     Route: 065
  4. FINASTERIDE [Concomitant]
     Active Substance: FINASTERIDE
     Indication: Product used for unknown indication
     Dosage: 5 MG
     Route: 065
  5. LEXAPRO [Concomitant]
     Active Substance: ESCITALOPRAM OXALATE
     Indication: Depression
     Dosage: 10 MG
     Route: 065
  6. LEXAPRO [Concomitant]
     Active Substance: ESCITALOPRAM OXALATE
     Indication: Anxiety
  7. PROPRANOLOL [Concomitant]
     Active Substance: PROPRANOLOL HYDROCHLORIDE
     Indication: Product used for unknown indication
     Dosage: 20 MG
     Route: 065
  8. REQUIP [Concomitant]
     Active Substance: ROPINIROLE HYDROCHLORIDE
     Indication: Product used for unknown indication
     Dosage: 0.5 MG
     Route: 065
  9. BUPROPION [Concomitant]
     Active Substance: BUPROPION
     Indication: Product used for unknown indication
     Dosage: 150 MG (24H)
     Route: 065
  10. XANAX [Concomitant]
     Active Substance: ALPRAZOLAM
     Indication: Depression
     Dosage: UNK
     Route: 065
  11. XANAX [Concomitant]
     Active Substance: ALPRAZOLAM
     Indication: Anxiety
  12. WELLBUTRIN [Concomitant]
     Active Substance: BUPROPION HYDROCHLORIDE
     Indication: Depression
     Dosage: UNK
     Route: 065
  13. WELLBUTRIN [Concomitant]
     Active Substance: BUPROPION HYDROCHLORIDE
     Indication: Anxiety

REACTIONS (5)
  - Obsessive-compulsive disorder [Unknown]
  - Mood altered [Unknown]
  - Disorientation [Not Recovered/Not Resolved]
  - Confusional state [Not Recovered/Not Resolved]
  - Product dispensing error [Not Recovered/Not Resolved]

NARRATIVE: CASE EVENT DATE: 20210101
